FAERS Safety Report 7730194-1 (Version None)
Quarter: 2011Q3

REPORT INFORMATION
  Report Type: 
  Country: None (occurrence: None)
  Receive Date: 20110906
  Receipt Date: 20110826
  Transmission Date: 20111222
  Serious: Yes (Hospitalization)
  Sender: FDA-Public Use
  Company Number: JP-ASTRAZENECA-2011SE52619

PATIENT
  Age: 80 Year
  Sex: Male

DRUGS (2)
  1. CALCIUM CHANNEL BLOCKERS [Concomitant]
     Route: 065
  2. CANDESARTAN CILEXETIL [Suspect]
     Indication: HYPERTENSION
     Route: 048
     Dates: start: 20110601, end: 20110801

REACTIONS (1)
  - RHABDOMYOLYSIS [None]
